FAERS Safety Report 8549691-4 (Version None)
Quarter: 2012Q3

REPORT INFORMATION
  Report Type: 
  Country: None (occurrence: None)
  Receive Date: 20120730
  Receipt Date: 20120723
  Transmission Date: 20120928
  Serious: Yes (Other)
  Sender: FDA-Public Use
  Company Number: US-PFIZER INC-2012029536

PATIENT
  Sex: Male
  Weight: 78 kg

DRUGS (9)
  1. ELAVIL [Concomitant]
     Indication: PAIN
  2. TESTOSTERONE [Concomitant]
     Indication: BLOOD TESTOSTERONE DECREASED
     Dosage: UNK
  3. LANSOPRAZOLE [Concomitant]
     Indication: GASTRIC DISORDER
     Dosage: UNK
  4. ELAVIL [Concomitant]
     Indication: DEPRESSION
     Dosage: UNK
  5. ATENOLOL [Concomitant]
     Indication: HYPERTENSION
     Dosage: UNK
  6. PRISTIQ [Suspect]
     Dosage: 50 MG, 1X/DAY
     Route: 048
     Dates: start: 20120705
  7. PRISTIQ [Suspect]
     Indication: DEPRESSION
     Dosage: 50 MG, 1X/DAY
     Route: 048
     Dates: start: 20120125
  8. PRISTIQ [Suspect]
     Dosage: 25 MG, UNK
     Dates: end: 20120306
  9. LIPITOR [Concomitant]
     Indication: BLOOD CHOLESTEROL INCREASED
     Dosage: UNK

REACTIONS (27)
  - ACTIVITIES OF DAILY LIVING IMPAIRED [None]
  - ARTHRALGIA [None]
  - DEPRESSION [None]
  - ANXIETY [None]
  - INSOMNIA [None]
  - PHARYNGEAL OEDEMA [None]
  - HYPERSENSITIVITY [None]
  - DIZZINESS [None]
  - MEMORY IMPAIRMENT [None]
  - DECREASED APPETITE [None]
  - DISTURBANCE IN ATTENTION [None]
  - HYPOAESTHESIA [None]
  - SOMNOLENCE [None]
  - SYNCOPE [None]
  - FEELING ABNORMAL [None]
  - FATIGUE [None]
  - CONSTIPATION [None]
  - OROPHARYNGEAL PAIN [None]
  - TREMOR [None]
  - RASH [None]
  - AMNESIA [None]
  - METABOLIC DISORDER [None]
  - DYSPHAGIA [None]
  - SCIATICA [None]
  - ABDOMINAL DISTENSION [None]
  - ASTHENIA [None]
  - NERVOUS SYSTEM DISORDER [None]
